FAERS Safety Report 4947802-0 (Version None)
Quarter: 2006Q1

REPORT INFORMATION
  Report Type: 
  Country: None (occurrence: None)
  Receive Date: 20060317
  Receipt Date: 20060317
  Transmission Date: 20060701
  Serious: Yes (Other)
  Sender: FDA-Public Use
  Company Number: None

PATIENT
  Sex: Female
  Weight: 49.8957 kg

DRUGS (8)
  1. NEXAVAR [Suspect]
     Indication: RENAL CELL CARCINOMA STAGE UNSPECIFIED
     Dosage: 400 MG (2 TABS) BID PO
     Route: 048
     Dates: start: 20060310, end: 20060315
  2. LUNESTA [Concomitant]
  3. LYRICA [Concomitant]
  4. SPIRONOLACTONE [Concomitant]
  5. HYDROMORPHONE HCL [Concomitant]
  6. METHADONE HCL [Concomitant]
  7. CELEBREX [Concomitant]
  8. LACTULOSE [Concomitant]

REACTIONS (1)
  - URINARY INCONTINENCE [None]
